FAERS Safety Report 25385055 (Version 1)
Quarter: 2025Q2

REPORT INFORMATION
  Report Type: Spontaneous
  Country: US (occurrence: US)
  Receive Date: 20250602
  Receipt Date: 20250602
  Transmission Date: 20250716
  Serious: Yes (Death, Other)
  Sender: EPIC PHARM
  Company Number: US-EPICPHARMA-US-2025EPCLIT00646

PATIENT
  Age: 21 Month

DRUGS (1)
  1. FLECAINIDE ACETATE [Suspect]
     Active Substance: FLECAINIDE ACETATE
     Indication: Wolff-Parkinson-White syndrome
     Route: 048

REACTIONS (2)
  - Toxicity to various agents [Fatal]
  - Product use in unapproved indication [Unknown]
